FAERS Safety Report 9675152 (Version 4)
Quarter: 2013Q4

REPORT INFORMATION
  Report Type: Report from Study
  Country: KR (occurrence: KR)
  Receive Date: 20131107
  Receipt Date: 20131205
  Transmission Date: 20140711
  Serious: Yes (Hospitalization)
  Sender: FDA-Public Use
  Company Number: KR-BAYER-2013-109452

PATIENT
  Age: 75 Year
  Sex: Male
  Weight: 64 kg

DRUGS (43)
  1. SORAFENIB (RAF KINASE INHIBITOR) [Suspect]
     Indication: HEPATOCELLULAR CARCINOMA
     Dosage: 800 MG/DAY
     Dates: start: 20130712, end: 2013
  2. SORAFENIB (RAF KINASE INHIBITOR) [Suspect]
     Indication: HEPATOCELLULAR CARCINOMA
     Dosage: 600 MG/DAY
     Dates: start: 2013, end: 20130909
  3. SORAFENIB (RAF KINASE INHIBITOR) [Suspect]
     Indication: HEPATOCELLULAR CARCINOMA
     Dosage: 400 MG DAILY
     Route: 048
     Dates: start: 2013, end: 2013
  4. SORAFENIB (RAF KINASE INHIBITOR) [Suspect]
     Indication: HEPATOCELLULAR CARCINOMA
     Dosage: 600 MG DAILY
     Route: 048
     Dates: start: 20131015, end: 20131028
  5. SORAFENIB (RAF KINASE INHIBITOR) [Suspect]
     Indication: HEPATOCELLULAR CARCINOMA
     Dosage: 400 MG/DAY
     Dates: start: 20131122
  6. NEXIUM [Concomitant]
     Dosage: 40 MG, QD
     Route: 048
     Dates: start: 20130712
  7. URSA [Concomitant]
     Dosage: 100 MG, TID
     Route: 048
     Dates: start: 20130711
  8. AMYLASE/LIPASE/PROTEASE [Concomitant]
     Dosage: 457.7 MG, TID
     Route: 048
     Dates: start: 20130711
  9. LACTICARE HC [Concomitant]
     Dosage: UNK UNK, PRN
     Dates: start: 20130722
  10. VIREAD [Concomitant]
     Dosage: 300 MG, QD
     Route: 048
     Dates: start: 20130728
  11. VIREAD [Concomitant]
     Dosage: 300 MG, QOD
     Route: 048
     Dates: start: 20131118
  12. LIVACT [Concomitant]
     Dosage: UNK UNK, TID
     Route: 048
     Dates: start: 20130728
  13. NEURONTIN [Concomitant]
     Dosage: 100 MG, TID
     Route: 048
     Dates: start: 20130801
  14. NEURONTIN [Concomitant]
     Dosage: 300 MG, TID
     Route: 048
     Dates: start: 20131123
  15. PREDNISOLONE [Concomitant]
     Dosage: 5 MG, BID
     Route: 048
     Dates: start: 20130803
  16. MUCOSTA [Concomitant]
     Dosage: 100 MG, TID
     Dates: start: 20130814
  17. MYRTOL [Concomitant]
     Dosage: 300 MG, TID
     Route: 048
     Dates: start: 20130814
  18. CORTISOL [Concomitant]
     Dosage: 50 MG, UNK
     Route: 042
     Dates: start: 20130909
  19. TYLENOL [PARACETAMOL] [Concomitant]
     Dosage: 2 T
     Route: 048
     Dates: start: 20130909
  20. PHENIRAMINE [Concomitant]
     Dosage: 4 MG, UNK
     Route: 042
     Dates: start: 20130909
  21. DEXAMETHASONE [DEXAMETHASONE] [Concomitant]
     Dosage: 5 MG, UNK
     Route: 042
     Dates: start: 20130909
  22. LEVOTUSS [Concomitant]
     Dosage: 60 MG, TID
     Route: 048
     Dates: start: 20120912
  23. HYSONE [Concomitant]
     Dosage: 20 MG, BID
     Route: 048
     Dates: start: 20120914
  24. LASIX [Concomitant]
     Dosage: 40 MG, QD
     Route: 048
     Dates: start: 20130929
  25. LASIX [Concomitant]
     Dosage: 20 MG
     Route: 042
     Dates: start: 20131117, end: 20131122
  26. LASIX [Concomitant]
     Dosage: 20 MG
     Route: 042
     Dates: start: 20131125
  27. AVELOX [Concomitant]
     Dosage: 400 MG, QD
     Route: 048
     Dates: start: 20130927
  28. NOVONORM [Concomitant]
     Dosage: 1 DF, TID
     Route: 048
     Dates: start: 20131004
  29. LANTUS [Concomitant]
     Dosage: 14 U
     Route: 058
     Dates: start: 20130916, end: 20131004
  30. LANTUS [Concomitant]
     Dosage: 10 U
     Dates: start: 20131005
  31. LANTUS [Concomitant]
     Dosage: 6 U
     Route: 058
     Dates: start: 20131015
  32. CEFTRIAXONE [Concomitant]
     Dosage: 2 G IVS
     Dates: start: 20130913, end: 20130927
  33. AMBISOME [Concomitant]
     Dosage: 150 MG
     Route: 042
     Dates: start: 20130912, end: 20130929
  34. AMLODIPINE [Concomitant]
     Dosage: 5 MG, QD
     Route: 048
     Dates: start: 20131030
  35. ZOVIRAX [Concomitant]
     Dosage: UNK
     Dates: start: 20131030
  36. RIFAXIMIN [Concomitant]
     Dosage: 40 MG, TID
     Route: 048
     Dates: start: 20131030
  37. ULTRACET [Concomitant]
     Dosage: 1T, BID
     Route: 048
     Dates: start: 20131030
  38. ACETYLCYSTEIN [Concomitant]
     Dosage: 600 MG, QD
     Route: 042
     Dates: start: 20131031, end: 20131101
  39. CANDESARTAN [Concomitant]
     Dosage: 8 MG, QD
     Dates: start: 20131031
  40. DUPHALAC [LACTULOSE] [Concomitant]
     Indication: INFREQUENT BOWEL MOVEMENTS
  41. NORMIX [Concomitant]
     Dosage: 40 MG, TID
     Route: 048
     Dates: start: 20131030
  42. ALBUMIN [Concomitant]
     Dosage: 100 CC
     Route: 042
     Dates: start: 20131117, end: 20131122
  43. ALBUMIN [Concomitant]
     Dosage: 100 CC
     Route: 042
     Dates: start: 20131125

REACTIONS (3)
  - Encephalopathy [Recovered/Resolved]
  - Pneumonia [Recovered/Resolved]
  - Oedema peripheral [Recovered/Resolved]
